FAERS Safety Report 23048849 (Version 1)
Quarter: 2023Q4

REPORT INFORMATION
  Report Type: Spontaneous
  Country: US (occurrence: None)
  Receive Date: 20231006
  Receipt Date: 20231006
  Transmission Date: 20240110
  Serious: Yes (Hospitalization)
  Sender: FDA-Public Use
  Company Number: None

PATIENT
  Age: 49 Year
  Sex: Female
  Weight: 55.5 kg

DRUGS (18)
  1. ERTAPENEM [Suspect]
     Active Substance: ERTAPENEM
     Indication: Pathogen resistance
     Dosage: FREQUENCY : DAILY;?
     Route: 041
  2. ERTAPENEM [Suspect]
     Active Substance: ERTAPENEM
     Indication: Urinary tract infection
  3. ACETAMINOPHEN [Concomitant]
     Active Substance: ACETAMINOPHEN
     Dates: start: 20230926, end: 20230927
  4. BENZONATATE [Concomitant]
     Active Substance: BENZONATATE
     Dates: start: 20230927, end: 20231001
  5. diltiazem IR [Concomitant]
     Dates: start: 20230927, end: 20231001
  6. ENOXAPARIN [Concomitant]
     Active Substance: ENOXAPARIN
     Dates: start: 20230926, end: 20231001
  7. EPOETIN ALFA-EPBX [Concomitant]
     Active Substance: EPOETIN ALFA-EPBX
     Dates: start: 20230929, end: 20230929
  8. FAMOTIDINE [Concomitant]
     Active Substance: FAMOTIDINE
     Dates: start: 20230926, end: 20230929
  9. GUAIFENESIN AND CODEINE PHOSPHATE [Concomitant]
     Active Substance: CODEINE PHOSPHATE\GUAIFENESIN
     Dates: start: 20230926, end: 20231001
  10. MEROPENEM [Concomitant]
     Active Substance: MEROPENEM
     Dates: start: 20230927, end: 20231001
  11. MYCOPHENOLIC ACID [Concomitant]
     Active Substance: MYCOPHENOLIC ACID
     Dates: start: 20230926, end: 20231001
  12. ZOFRAN [Concomitant]
     Active Substance: ONDANSETRON HYDROCHLORIDE
     Dates: start: 20230926, end: 20231001
  13. PREDNISONE [Concomitant]
     Active Substance: PREDNISONE
     Dates: start: 20230927, end: 20231001
  14. REMDESIVIR [Concomitant]
     Active Substance: REMDESIVIR
     Dates: start: 20230927, end: 20230930
  15. SODIUM BICARBONATE [Concomitant]
     Active Substance: SODIUM BICARBONATE
     Dates: start: 20230926, end: 20231001
  16. SODIUM CHLORIDE [Concomitant]
     Active Substance: SODIUM CHLORIDE
     Dates: start: 20230926, end: 20231001
  17. TACROLIMUS [Concomitant]
     Active Substance: TACROLIMUS
     Dates: start: 20230930, end: 20231001
  18. TRAZODONE [Concomitant]
     Active Substance: TRAZODONE HYDROCHLORIDE
     Dates: start: 20230926, end: 20231001

REACTIONS (3)
  - Seizure [None]
  - Fall [None]
  - Head injury [None]

NARRATIVE: CASE EVENT DATE: 20231006
